FAERS Safety Report 21821275 (Version 1)
Quarter: 2023Q1

REPORT INFORMATION
  Report Type: Spontaneous
  Country: IT (occurrence: IT)
  Receive Date: 20230105
  Receipt Date: 20230105
  Transmission Date: 20230417
  Serious: Yes (Other)
  Sender: FDA-Public Use
  Company Number: None

PATIENT
  Age: 77 Year
  Sex: Male

DRUGS (2)
  1. CARBOPLATIN [Suspect]
     Active Substance: CARBOPLATIN
     Indication: Mesothelioma
     Route: 065
     Dates: start: 20221013
  2. GEMCITABINE [Suspect]
     Active Substance: GEMCITABINE
     Indication: Mesothelioma
     Route: 065
     Dates: start: 20221013

REACTIONS (4)
  - Neutropenia [Recovering/Resolving]
  - Hypertransaminasaemia [Recovering/Resolving]
  - Alanine aminotransferase increased [Recovering/Resolving]
  - Aspartate aminotransferase increased [Recovering/Resolving]

NARRATIVE: CASE EVENT DATE: 20221031
